FAERS Safety Report 18547441 (Version 2)
Quarter: 2020Q4

REPORT INFORMATION
  Report Type: Spontaneous
  Country: US (occurrence: US)
  Receive Date: 20201126
  Receipt Date: 20201221
  Transmission Date: 20210114
  Serious: No
  Sender: FDA-Public Use
  Company Number: US-APOTEX-2020AP021231

PATIENT
  Sex: Male

DRUGS (2)
  1. NICOTINE. [Suspect]
     Active Substance: NICOTINE
     Indication: SMOKING CESSATION THERAPY
     Dosage: 1 DOSAGE FORM, QD APPLIED 11 PATCHES OF THE 14MG FROM ONE BOX
     Route: 062
     Dates: end: 20201030
  2. NICOTINE. [Suspect]
     Active Substance: NICOTINE
     Indication: SMOKING CESSATION THERAPY
     Dosage: 1 DOSAGE FORM, QD 1 PATCH EVERY 24 HOURS USED TOTAL 28 PATCHES
     Route: 062
     Dates: start: 202009, end: 20201030

REACTIONS (4)
  - Application site reaction [Not Recovered/Not Resolved]
  - Application site erythema [Not Recovered/Not Resolved]
  - Product substitution issue [Unknown]
  - Application site pruritus [Not Recovered/Not Resolved]
